FAERS Safety Report 10753989 (Version 1)
Quarter: 2015Q1

REPORT INFORMATION
  Report Type: Spontaneous
  Country: None (occurrence: RO)
  Receive Date: 20150202
  Receipt Date: 20150202
  Transmission Date: 20150721
  Serious: Yes (Other)
  Sender: FDA-Public Use
  Company Number: RO-DRREDDYS-USA/ROM/15/0045743

PATIENT
  Age: 48 Year
  Sex: Female

DRUGS (4)
  1. DOCETAXEL. [Suspect]
     Active Substance: DOCETAXEL
     Indication: CHEMOTHERAPY
     Route: 065
  2. TRASTUZUMAB [Suspect]
     Active Substance: TRASTUZUMAB
     Indication: CHEMOTHERAPY
     Route: 065
  3. CYCLOPHOSPHAMIDE. [Suspect]
     Active Substance: CYCLOPHOSPHAMIDE
     Indication: CHEMOTHERAPY
     Route: 065
  4. DOXORUBICIN [Suspect]
     Active Substance: DOXORUBICIN
     Indication: CHEMOTHERAPY
     Route: 065

REACTIONS (5)
  - Cardiac failure acute [Recovering/Resolving]
  - Ejection fraction decreased [Recovering/Resolving]
  - Cardiovascular disorder [Recovering/Resolving]
  - Mitral valve incompetence [Recovering/Resolving]
  - Pulmonary hypertension [Recovering/Resolving]
